FAERS Safety Report 8335964-7 (Version None)
Quarter: 2012Q2

REPORT INFORMATION
  Report Type: 
  Country: None (occurrence: None)
  Receive Date: 20120504
  Receipt Date: 20120501
  Transmission Date: 20120825
  Serious: Yes (Other)
  Sender: FDA-Public Use
  Company Number: US-PFIZER INC-2012107163

PATIENT
  Sex: Female
  Weight: 99.773 kg

DRUGS (2)
  1. EFFEXOR XR [Suspect]
     Indication: DEPRESSION
     Dosage: 150 MG, 2X/DAY
     Route: 048
     Dates: end: 20110701
  2. EFFEXOR XR [Suspect]
     Indication: ANXIETY
     Dosage: 150 MG, 2X/DAY
     Route: 048
     Dates: start: 20110701

REACTIONS (6)
  - DISCOMFORT [None]
  - DIZZINESS [None]
  - DYSPNOEA [None]
  - ASTHENIA [None]
  - MALAISE [None]
  - HEADACHE [None]
